FAERS Safety Report 6431979-4 (Version None)
Quarter: 2009Q4

REPORT INFORMATION
  Report Type: 
  Country: None (occurrence: None)
  Receive Date: 20091109
  Receipt Date: 20091029
  Transmission Date: 20100525
  Serious: Yes (Other)
  Sender: FDA-Public Use
  Company Number: CA-JNJFOC-20090607252

PATIENT
  Sex: Female
  Weight: 73.48 kg

DRUGS (13)
  1. STELARA [Suspect]
     Indication: PSORIASIS
     Route: 058
  2. GLYBURIDE [Concomitant]
     Indication: DIABETES MELLITUS
  3. ASPIRIN [Concomitant]
     Indication: DRUG USE FOR UNKNOWN INDICATION
  4. INSULIN [Concomitant]
     Indication: DIABETES MELLITUS
  5. METFORMIN [Concomitant]
     Indication: DIABETES MELLITUS
  6. ALTACE [Concomitant]
     Indication: DRUG USE FOR UNKNOWN INDICATION
  7. LIPITOR [Concomitant]
     Indication: DRUG USE FOR UNKNOWN INDICATION
  8. EZETROL [Concomitant]
     Indication: DRUG USE FOR UNKNOWN INDICATION
  9. PLAVIX [Concomitant]
     Indication: DRUG USE FOR UNKNOWN INDICATION
  10. CLONAZEPAM [Concomitant]
     Indication: DRUG USE FOR UNKNOWN INDICATION
  11. MONOCOR [Concomitant]
     Indication: DRUG USE FOR UNKNOWN INDICATION
  12. NORVASC [Concomitant]
     Indication: DRUG USE FOR UNKNOWN INDICATION
  13. ENBREL [Concomitant]
     Indication: PSORIASIS

REACTIONS (5)
  - EAR NEOPLASM MALIGNANT [None]
  - FACIAL PAIN [None]
  - HEARING IMPAIRED [None]
  - MIGRAINE [None]
  - PSORIASIS [None]
